FAERS Safety Report 4958822-4 (Version None)
Quarter: 2006Q1

REPORT INFORMATION
  Report Type: 
  Country: None (occurrence: None)
  Receive Date: 20060324
  Receipt Date: 20060313
  Transmission Date: 20060701
  Serious: Yes (Other)
  Sender: FDA-Public Use
  Company Number: 223078

PATIENT
  Age: 65 Year
  Sex: Female

DRUGS (1)
  1. XOLAIR [Suspect]
     Dosage: 300 MG, 2/WEEK, SUBCUTANEOUS
     Route: 058
     Dates: start: 20060123, end: 20060221

REACTIONS (1)
  - SERUM SICKNESS [None]
